FAERS Safety Report 11347224 (Version 1)
Quarter: 2015Q3

REPORT INFORMATION
  Report Type: Spontaneous
  Country: US (occurrence: US)
  Receive Date: 20150803
  Receipt Date: 20150803
  Transmission Date: 20151125
  Serious: No
  Sender: FDA-Public Use
  Company Number: US-ELI_LILLY_AND_COMPANY-US201104006592

PATIENT
  Age: 50 Year
  Sex: Female

DRUGS (3)
  1. ZYPREXA [Suspect]
     Active Substance: OLANZAPINE
     Indication: BIPOLAR DISORDER
     Dosage: 2.5 MG, QD
  2. ZYPREXA [Suspect]
     Active Substance: OLANZAPINE
     Dosage: 10 MG, QD
  3. ZYPREXA [Suspect]
     Active Substance: OLANZAPINE
     Dosage: 5 MG, QD

REACTIONS (11)
  - Hypersomnia [Unknown]
  - Logorrhoea [Unknown]
  - Increased appetite [Unknown]
  - Feeling abnormal [Unknown]
  - Disorientation [Unknown]
  - Anxiety disorder [Unknown]
  - Mania [Unknown]
  - Depression [Recovered/Resolved]
  - Reading disorder [Unknown]
  - Fatigue [Unknown]
  - Weight increased [Unknown]

NARRATIVE: CASE EVENT DATE: 201008
